FAERS Safety Report 18918657 (Version 2)
Quarter: 2021Q1

REPORT INFORMATION
  Report Type: Spontaneous
  Country: DE (occurrence: DE)
  Receive Date: 20210220
  Receipt Date: 20210305
  Transmission Date: 20210420
  Serious: Yes (Other)
  Sender: FDA-Public Use
  Company Number: DE-AUROBINDO-AUR-APL-2021-006622

PATIENT
  Age: 50 Year
  Sex: Male
  Weight: 63 kg

DRUGS (1)
  1. MOXIFLOXACIN. [Suspect]
     Active Substance: MOXIFLOXACIN
     Indication: DISSEMINATED TUBERCULOSIS
     Dosage: 400 MILLIGRAM
     Route: 048
     Dates: start: 2020

REACTIONS (2)
  - Tubulointerstitial nephritis [Unknown]
  - Ototoxicity [Unknown]

NARRATIVE: CASE EVENT DATE: 2020
